FAERS Safety Report 18766180 (Version 1)
Quarter: 2021Q1

REPORT INFORMATION
  Report Type: Report from Study
  Country: None (occurrence: CA)
  Receive Date: 20210121
  Receipt Date: 20210121
  Transmission Date: 20210419
  Serious: Yes (Other)
  Sender: FDA-Public Use
  Company Number: CA-ABBVIE-21K-028-3736864-00

PATIENT
  Age: 45 Year
  Sex: Female

DRUGS (1)
  1. HUMIRA [Suspect]
     Active Substance: ADALIMUMAB
     Indication: CROHN^S DISEASE
     Route: 058
     Dates: start: 20201102, end: 2020

REACTIONS (8)
  - Ovarian necrosis [Recovered/Resolved]
  - Cyst rupture [Unknown]
  - Fallopian tube necrosis [Recovered/Resolved]
  - General symptom [Not Recovered/Not Resolved]
  - Epistaxis [Recovered/Resolved]
  - Haematemesis [Recovered/Resolved]
  - Abdominal pain [Recovered/Resolved]
  - Adnexal torsion [Recovered/Resolved]

NARRATIVE: CASE EVENT DATE: 20201223
